FAERS Safety Report 7531593-3 (Version None)
Quarter: 2011Q2

REPORT INFORMATION
  Report Type: 
  Country: None (occurrence: None)
  Receive Date: 20110608
  Receipt Date: 20110525
  Transmission Date: 20111010
  Serious: Yes (Other)
  Sender: FDA-Public Use
  Company Number: JP-CELGENEUS-087-21880-11053047

PATIENT
  Sex: Male

DRUGS (13)
  1. REVLIMID [Suspect]
     Dosage: 5 MILLIGRAM
     Route: 048
     Dates: start: 20101202, end: 20101204
  2. LOSARTAN POTASSIUM [Concomitant]
     Indication: HYPERTENSION
     Dosage: 25 MILLIGRAM
     Route: 048
     Dates: start: 20090312, end: 20110113
  3. CRESTOR [Concomitant]
     Indication: HYPERLIPIDAEMIA
     Dosage: 2.5 MILLIGRAM
     Route: 048
     Dates: start: 20081204, end: 20110113
  4. ISOSORBIDE DINITRATE [Concomitant]
     Dosage: 40 MILLIGRAM
     Route: 048
     Dates: start: 20090319, end: 20110113
  5. OLOPATADINE HCL [Concomitant]
     Indication: ILL-DEFINED DISORDER
     Dosage: 10 MILLIGRAM
     Route: 048
     Dates: start: 20101129, end: 20110113
  6. ASPIRIN [Concomitant]
     Dosage: 100 MILLIGRAM
     Route: 048
     Dates: start: 20060323, end: 20110113
  7. ALLOPURINOL [Concomitant]
     Indication: ILL-DEFINED DISORDER
     Dosage: 50 MILLIGRAM
     Route: 048
     Dates: start: 20101127, end: 20110113
  8. GRAN [Concomitant]
     Indication: ILL-DEFINED DISORDER
     Dosage: 75 MILLIGRAM
     Route: 030
     Dates: start: 20101129, end: 20101208
  9. CIBENOL [Concomitant]
     Indication: HYPERTENSION
     Dosage: 100 MILLIGRAM
     Route: 048
     Dates: start: 20070419, end: 20110113
  10. NOVOLIN R [Concomitant]
     Indication: DIABETES MELLITUS
     Dosage: 14 UNITS
     Route: 030
     Dates: start: 20060323, end: 20110113
  11. CARVEDILOL [Concomitant]
     Indication: HYPERTENSION
     Dosage: 10 MILLIGRAM
     Route: 048
     Dates: start: 20060518, end: 20110113
  12. NESPO [Concomitant]
     Indication: RENAL FAILURE CHRONIC
     Dosage: 60 MICROGRAM
     Route: 030
     Dates: start: 20101206, end: 20110126
  13. PLATELETS [Concomitant]
     Indication: ILL-DEFINED DISORDER
     Dosage: 10 UNITS
     Route: 041
     Dates: start: 20101202, end: 20110113

REACTIONS (5)
  - HYPONATRAEMIA [None]
  - HYPERKALAEMIA [None]
  - DEAFNESS NEUROSENSORY [None]
  - HEPATIC FUNCTION ABNORMAL [None]
  - NASOPHARYNGITIS [None]
